FAERS Safety Report 7363281-0 (Version None)
Quarter: 2011Q1

REPORT INFORMATION
  Report Type: 
  Country: None (occurrence: None)
  Receive Date: 20110321
  Receipt Date: 20110308
  Transmission Date: 20110831
  Serious: Yes (Hospitalization)
  Sender: FDA-Public Use
  Company Number: US-JNJFOC-20100800458

PATIENT
  Sex: Female
  Weight: 54.7 kg

DRUGS (4)
  1. HUMIRA [Concomitant]
  2. INFLIXIMAB, RECOMBINANT [Suspect]
     Indication: CROHN'S DISEASE
     Dosage: RECEIVED 17 INFUSIONS
     Route: 042
  3. LYRICA [Concomitant]
  4. INFLIXIMAB, RECOMBINANT [Suspect]
     Indication: INFLAMMATORY BOWEL DISEASE
     Dosage: RECEIVED 17 INFUSIONS
     Route: 042

REACTIONS (2)
  - ABDOMINAL PAIN [None]
  - HYPOPHAGIA [None]
